FAERS Safety Report 8611835-3 (Version None)
Quarter: 2012Q3

REPORT INFORMATION
  Report Type: 
  Country: None (occurrence: None)
  Receive Date: 20120822
  Receipt Date: 20120813
  Transmission Date: 20120928
  Serious: Yes (Other)
  Sender: FDA-Public Use
  Company Number: DE-JNJFOC-20120809158

PATIENT
  Age: 66 Year
  Sex: Male

DRUGS (1)
  1. REMICADE [Suspect]
     Indication: COLITIS ULCERATIVE
     Route: 042
     Dates: start: 20080701, end: 20120501

REACTIONS (3)
  - URINARY RETENTION [None]
  - PROSTATE CANCER [None]
  - RENAL FAILURE [None]
